FAERS Safety Report 5647210-3 (Version None)
Quarter: 2008Q1

REPORT INFORMATION
  Report Type: 
  Country: None (occurrence: None)
  Receive Date: 20080303
  Receipt Date: 20080225
  Transmission Date: 20080703
  Serious: Yes (Hospitalization)
  Sender: FDA-Public Use
  Company Number: US-GILEAD-2008-0015483

PATIENT
  Sex: Male
  Weight: 56.75 kg

DRUGS (2)
  1. LETAIRIS [Suspect]
     Indication: PULMONARY HYPERTENSION
     Route: 048
  2. SYNTHROID [Concomitant]
     Route: 048

REACTIONS (2)
  - DYSPNOEA [None]
  - STAPHYLOCOCCAL INFECTION [None]
